FAERS Safety Report 9434696 (Version 1)
Quarter: 2013Q3

REPORT INFORMATION
  Report Type: Spontaneous
  Country: US (occurrence: US)
  Receive Date: 20130801
  Receipt Date: 20130801
  Transmission Date: 20140515
  Serious: No
  Sender: FDA-Public Use
  Company Number: US-COVIDIEN/TYCO HEALTHCARE/MALLINCKRODT-T201203747

PATIENT
  Sex: Female

DRUGS (1)
  1. PAMELOR [Suspect]
     Dosage: ONE CAPSULE, QD
     Dates: start: 1980

REACTIONS (2)
  - Arthralgia [Not Recovered/Not Resolved]
  - Mobility decreased [Not Recovered/Not Resolved]
